FAERS Safety Report 5136421-1 (Version None)
Quarter: 2006Q4

REPORT INFORMATION
  Report Type: 
  Country: None (occurrence: None)
  Receive Date: 20061027
  Receipt Date: 20050712
  Transmission Date: 20070319
  Serious: No
  Sender: FDA-Public Use
  Company Number: US-BRISTOL-MYERS SQUIBB COMPANY-13035100

PATIENT
  Age: 77 Year
  Sex: Female
  Weight: 54 kg

DRUGS (2)
  1. KENALOG-40 [Suspect]
     Indication: PAIN
     Route: 050
     Dates: start: 20040901
  2. ACTONEL [Concomitant]

REACTIONS (3)
  - ECCHYMOSIS [None]
  - SKIN ATROPHY [None]
  - SKIN HAEMORRHAGE [None]
